FAERS Safety Report 4630716-3 (Version None)
Quarter: 2005Q2

REPORT INFORMATION
  Report Type: 
  Country: None (occurrence: None)
  Receive Date: 20050408
  Receipt Date: 20050209
  Transmission Date: 20051028
  Serious: Yes (Hospitalization)
  Sender: FDA-Public Use
  Company Number: CA-ROCHE-395232

PATIENT
  Age: 86 Year
  Sex: Male
  Weight: 60.3 kg

DRUGS (14)
  1. TAMIFLU [Suspect]
     Indication: INFLUENZA
     Route: 048
     Dates: start: 20050131, end: 20050205
  2. WARFARIN [Concomitant]
     Indication: ATRIAL FIBRILLATION
     Route: 048
     Dates: start: 20050123, end: 20050207
  3. ASPIRIN [Concomitant]
     Indication: CEREBROVASCULAR ACCIDENT PROPHYLAXIS
     Route: 048
     Dates: start: 20050107
  4. ANAGRELIDE HCL [Concomitant]
     Route: 048
     Dates: start: 20050107
  5. POLYVINYL ALCOHOL [Concomitant]
     Dosage: 2 DROPS IN THE LEFT EYE FOUR TIMES A DAY.
     Route: 031
     Dates: start: 20050203
  6. METOPROLOL TARTRATE [Concomitant]
  7. ACETAMINOPHEN AND CODEINE PHOSPHATE [Concomitant]
     Dosage: TAKEN AS NEEDED.
  8. ACETAMINOPHEN [Concomitant]
     Dosage: TAKEN AS NEEDED.
  9. BISACODYL [Concomitant]
     Route: 054
  10. LOPERAMIDE HCL [Concomitant]
     Dosage: 1 TABLET AFTER EACH BOWEL MOVEMENT AS NEEDED.
  11. NITROGLYCERIN [Concomitant]
     Route: 060
  12. SODIUM PHOSPHATE ENEMA [Concomitant]
  13. BACID [Concomitant]
     Route: 048
  14. CEFTIN [Concomitant]
     Route: 048

REACTIONS (8)
  - AORTIC STENOSIS [None]
  - CARDIAC MURMUR [None]
  - COUGH [None]
  - FAECES DISCOLOURED [None]
  - GASTROINTESTINAL HAEMORRHAGE [None]
  - HAEMOGLOBIN DECREASED [None]
  - HAEMOPTYSIS [None]
  - INTERNATIONAL NORMALISED RATIO INCREASED [None]
